FAERS Safety Report 10199763 (Version 1)
Quarter: 2014Q2

REPORT INFORMATION
  Report Type: Spontaneous
  Country: US (occurrence: US)
  Receive Date: 20140527
  Receipt Date: 20140527
  Transmission Date: 20141212
  Serious: No
  Sender: FDA-Public Use
  Company Number: US-NOVEN-14US008935

PATIENT
  Age: 4 Year
  Sex: Male
  Weight: 25.4 kg

DRUGS (1)
  1. DAYTRANA [Suspect]
     Indication: ATTENTION DEFICIT/HYPERACTIVITY DISORDER
     Dosage: 30 MG, UNK
     Route: 062
     Dates: start: 201310

REACTIONS (7)
  - Psychomotor hyperactivity [Recovered/Resolved]
  - Disturbance in attention [Not Recovered/Not Resolved]
  - Disturbance in social behaviour [None]
  - Off label use [Not Recovered/Not Resolved]
  - Drug ineffective [Not Recovered/Not Resolved]
  - Incorrect product storage [Not Recovered/Not Resolved]
  - Product quality issue [Not Recovered/Not Resolved]
